FAERS Safety Report 5422082-0 (Version None)
Quarter: 2007Q3

REPORT INFORMATION
  Report Type: 
  Country: None (occurrence: None)
  Receive Date: 20070822
  Receipt Date: 20070816
  Transmission Date: 20080115
  Serious: Yes (Hospitalization)
  Sender: FDA-Public Use
  Company Number: US-BRISTOL-MYERS SQUIBB COMPANY-13571153

PATIENT
  Age: 74 Year
  Sex: Male

DRUGS (15)
  1. SPRYCEL [Suspect]
     Indication: CHRONIC MYELOID LEUKAEMIA
     Dosage: 3 SEPARATE CHALLENGES 70MG,50MG+35MGBID.DATES INTERMITANT JUL06- PRESENT.DOSE REDUCED TO 20 MGBID
     Route: 048
     Dates: start: 20060726
  2. PROPRANOLOL [Concomitant]
  3. HYDRALAZINE HCL [Concomitant]
  4. POTASSIUM CHLORIDE [Concomitant]
  5. VIAGRA [Concomitant]
  6. VITAMIN E [Concomitant]
  7. FOLIC ACID [Concomitant]
  8. BETACAROTENE [Concomitant]
  9. HYDROCHLOROTHIAZIDE [Concomitant]
  10. IMODIUM [Concomitant]
  11. LOMOTIL [Concomitant]
  12. COMPAZINE [Concomitant]
  13. HYDROXYUREA [Concomitant]
     Dates: end: 20060918
  14. COLESTID [Concomitant]
  15. AMINOSALICYLIC ACID [Concomitant]

REACTIONS (6)
  - CONFUSIONAL STATE [None]
  - COORDINATION ABNORMAL [None]
  - DYSARTHRIA [None]
  - PANCYTOPENIA [None]
  - PLEURAL EFFUSION [None]
  - RASH [None]
